FAERS Safety Report 4446115-3 (Version None)
Quarter: 2004Q3

REPORT INFORMATION
  Report Type: 
  Country: None (occurrence: None)
  Receive Date: 20040907
  Receipt Date: 20040825
  Transmission Date: 20050211
  Serious: Yes (Hospitalization, Other)
  Sender: FDA-Public Use
  Company Number: HQWYE607526AUG04

PATIENT
  Age: 54 Year
  Sex: Female
  Weight: 74 kg

DRUGS (2)
  1. MYLOTARG [Suspect]
     Indication: ACUTE PROMYELOCYTIC LEUKAEMIA
     Dosage: 4 MG/M2 (7 MG), INTRAVENOUS
     Route: 042
     Dates: start: 20021122, end: 20021206
  2. ALL-TRANS RETINOIC ACID (ALL-TRANS RETINOIC ACID) [Concomitant]

REACTIONS (8)
  - FLUID OVERLOAD [None]
  - HAEMOPTYSIS [None]
  - OPPORTUNISTIC INFECTION [None]
  - OXYGEN SATURATION DECREASED [None]
  - PULMONARY HAEMORRHAGE [None]
  - PULMONARY OEDEMA [None]
  - VENTRICULAR DYSFUNCTION [None]
  - WEIGHT INCREASED [None]
